FAERS Safety Report 7926779-X (Version None)
Quarter: 2011Q4

REPORT INFORMATION
  Report Type: 
  Country: None (occurrence: None)
  Receive Date: 20111118
  Receipt Date: 20111107
  Transmission Date: 20120403
  Serious: Yes (Other)
  Sender: FDA-Public Use
  Company Number: CH-RANBAXY-2011RR-50287

PATIENT
  Age: 2 Year
  Sex: Female

DRUGS (2)
  1. AMOXICILLIN [Suspect]
     Indication: OTITIS MEDIA
     Dosage: 250 MG, TID
     Route: 065
  2. AMOXICILLIN [Suspect]
     Indication: ALLERGY TEST
     Route: 048

REACTIONS (2)
  - PRURITUS [None]
  - RASH MACULO-PAPULAR [None]
